FAERS Safety Report 6732162-5 (Version None)
Quarter: 2010Q2

REPORT INFORMATION
  Report Type: 
  Country: None (occurrence: None)
  Receive Date: 20100519
  Receipt Date: 20100511
  Transmission Date: 20101027
  Serious: Yes (Hospitalization)
  Sender: FDA-Public Use
  Company Number: A0789336A

PATIENT
  Age: 45 Year
  Sex: Female
  Weight: 83.2 kg

DRUGS (1)
  1. AVANDIA [Suspect]
     Indication: DIABETES MELLITUS
     Dosage: 2MG PER DAY
     Route: 048
     Dates: start: 20070101, end: 20070701

REACTIONS (3)
  - ANGINA PECTORIS [None]
  - DYSPNOEA [None]
  - HYPERTENSION [None]
